FAERS Safety Report 5167151-8 (Version None)
Quarter: 2006Q4

REPORT INFORMATION
  Report Type: 
  Country: None (occurrence: None)
  Receive Date: 20061129
  Receipt Date: 20061117
  Transmission Date: 20070319
  Serious: Yes (Life-Threatening, Hospitalization, Other)
  Sender: FDA-Public Use
  Company Number: 2006112577

PATIENT
  Age: 76 Year
  Sex: Female

DRUGS (2)
  1. SULPERAZON (SULBACTAM, CEFOPERAZONE) [Suspect]
     Indication: PYREXIA
     Dosage: 1 GRAM (1 GRAM, FREQUENCY:  QD), INTRAVENOUS
     Route: 042
     Dates: start: 20060915, end: 20060915
  2. NUTRITIONAL SUPPLEMENT (GENERAL NUTRIENTS) [Suspect]
     Dosage: 500 ML, INTRAVENOUS
     Route: 042
     Dates: start: 20060915, end: 20060915

REACTIONS (1)
  - ANAPHYLACTIC SHOCK [None]
